FAERS Safety Report 11764974 (Version 1)
Quarter: 2015Q4

REPORT INFORMATION
  Report Type: Spontaneous
  Country: US (occurrence: US)
  Receive Date: 20151120
  Receipt Date: 20151120
  Transmission Date: 20160304
  Serious: No
  Sender: FDA-Public Use
  Company Number: US-ELI_LILLY_AND_COMPANY-US201309006811

PATIENT
  Age: 70 Year
  Sex: Female

DRUGS (3)
  1. PREDNISONE. [Concomitant]
     Active Substance: PREDNISONE
     Dosage: 15 MG, QD
     Dates: start: 201003
  2. FORTEO [Suspect]
     Active Substance: TERIPARATIDE
     Dosage: UNK, QD
     Dates: start: 201308
  3. PREDNISONE. [Concomitant]
     Active Substance: PREDNISONE
     Dosage: 20 MG, QD
     Dates: start: 201307

REACTIONS (2)
  - Red blood cell sedimentation rate decreased [Unknown]
  - Off label use [Not Recovered/Not Resolved]

NARRATIVE: CASE EVENT DATE: 201308
